FAERS Safety Report 7755189-3 (Version None)
Quarter: 2011Q3

REPORT INFORMATION
  Report Type: 
  Country: None (occurrence: None)
  Receive Date: 20110916
  Receipt Date: 20110623
  Transmission Date: 20111222
  Serious: Yes (Hospitalization, Other)
  Sender: FDA-Public Use
  Company Number: US-GLAXOSMITHKLINE-A0932742A

PATIENT
  Age: 45 Year
  Sex: Female

DRUGS (2)
  1. ESTROGEN CREAM [Concomitant]
  2. PROMACTA [Suspect]
     Indication: IDIOPATHIC THROMBOCYTOPENIC PURPURA
     Dosage: 50MG PER DAY
     Route: 048
     Dates: start: 20100601, end: 20110601

REACTIONS (2)
  - PULMONARY EMBOLISM [None]
  - PLATELET COUNT INCREASED [None]
